FAERS Safety Report 5542569-X (Version None)
Quarter: 2007Q4

REPORT INFORMATION
  Report Type: 
  Country: None (occurrence: None)
  Receive Date: 20071205
  Receipt Date: 20071205
  Transmission Date: 20080405
  Serious: Yes (Other)
  Sender: FDA-Public Use
  Company Number: None

PATIENT
  Sex: Female
  Weight: 95.2554 kg

DRUGS (1)
  1. CHANTIX [Suspect]
     Indication: SMOKING CESSATION THERAPY
     Dosage: 1 MG BID PO
     Route: 048
     Dates: start: 20071030, end: 20071106

REACTIONS (5)
  - AGGRESSION [None]
  - ANXIETY [None]
  - FEELING OF DESPAIR [None]
  - IRRITABILITY [None]
  - SUICIDAL IDEATION [None]
